FAERS Safety Report 10185891 (Version 2)
Quarter: 2014Q2

REPORT INFORMATION
  Report Type: Report from Study
  Country: US (occurrence: US)
  Receive Date: 20140521
  Receipt Date: 20140611
  Transmission Date: 20141212
  Serious: Yes (Hospitalization)
  Sender: FDA-Public Use
  Company Number: US-ACTELION-A-NJ2014-99049

PATIENT
  Age: 4 Year
  Sex: Male

DRUGS (2)
  1. TRACLEER [Suspect]
     Indication: PULMONARY HYPERTENSION
     Dosage: UNK
     Route: 048
     Dates: start: 20131023
  2. SILDENAFIL [Concomitant]

REACTIONS (3)
  - Viral infection [Recovering/Resolving]
  - Vomiting [Recovering/Resolving]
  - Drug intolerance [Recovering/Resolving]
